FAERS Safety Report 5003592-7 (Version None)
Quarter: 2006Q2

REPORT INFORMATION
  Report Type: 
  Country: None (occurrence: None)
  Receive Date: 20060511
  Receipt Date: 20060502
  Transmission Date: 20061013
  Serious: Yes (Hospitalization)
  Sender: FDA-Public Use
  Company Number: 2006058016

PATIENT
  Age: 67 Year
  Sex: Male

DRUGS (8)
  1. ATORVASTATIN CALCIUM [Suspect]
     Indication: HYPERLIPIDAEMIA
     Dosage: 10 MG (10 MG, 1 IN 1 D), ORAL
     Route: 048
  2. ACETYLSALICYLIC ACID SRT [Concomitant]
  3. CLOPIDOGREL [Concomitant]
  4. ENOXAPARIN SODIUM [Concomitant]
  5. METOPROLOL TARTRATE [Concomitant]
  6. TRANDOLAPRIL [Concomitant]
  7. GLIMEPIRIDE [Concomitant]
  8. METFORMIN [Concomitant]

REACTIONS (1)
  - CORONARY ARTERY STENOSIS [None]
